FAERS Safety Report 4691002-9 (Version None)
Quarter: 2005Q2

REPORT INFORMATION
  Report Type: 
  Country: None (occurrence: None)
  Receive Date: 20050614
  Receipt Date: 20050614
  Transmission Date: 20051028
  Serious: Yes (Life-Threatening, Hospitalization)
  Sender: FDA-Public Use
  Company Number: None

PATIENT
  Sex: Female

DRUGS (1)
  1. MYOCHRYSINE 50 MG IM TAYLOR PHARM [Suspect]
     Indication: RHEUMATOID ARTHRITIS
     Dosage: 50 MG IM AMPLUS EVERY OTHER DAY
     Route: 030
     Dates: start: 20010201, end: 20050501

REACTIONS (1)
  - ACUTE MYOCARDIAL INFARCTION [None]
